FAERS Safety Report 16024712 (Version 4)
Quarter: 2019Q2

REPORT INFORMATION
  Report Type: Spontaneous
  Country: JP (occurrence: JP)
  Receive Date: 20190301
  Receipt Date: 20190530
  Transmission Date: 20190711
  Serious: Yes (Death, Hospitalization, Other)
  Sender: FDA-Public Use
  Company Number: JP-DSJP-DSJ-2019-106714AA

PATIENT

DRUGS (8)
  1. LIXIANA TABLETS [Suspect]
     Active Substance: EDOXABAN TOSYLATE
     Dosage: 30 MG, QD
     Route: 048
     Dates: start: 20180629, end: 20180712
  2. HEPARIN [Concomitant]
     Active Substance: HEPARIN SODIUM
     Dosage: 5000UNITS/DAY
     Route: 042
     Dates: start: 20180624, end: 20180625
  3. FINIBAX [Concomitant]
     Active Substance: DORIPENEM MONOHYDRATE
     Indication: COLITIS ISCHAEMIC
     Dosage: 250 MG, BID
     Route: 042
     Dates: start: 20180625, end: 20180701
  4. ANTIBIOTICS [Suspect]
     Active Substance: UNSPECIFIED INGREDIENT
     Dosage: UNK
     Route: 065
  5. CEFMETAZOLE [Suspect]
     Active Substance: CEFMETAZOLE
     Indication: COLITIS ISCHAEMIC
  6. LIXIANA TABLETS [Suspect]
     Active Substance: EDOXABAN TOSYLATE
     Indication: ATRIAL FIBRILLATION
     Dosage: 30MG/DAY
     Route: 048
     Dates: end: 20180624
  7. LIXIANA TABLETS [Suspect]
     Active Substance: EDOXABAN TOSYLATE
     Dosage: 30 MG, QD
     Route: 048
     Dates: start: 20180715, end: 20180807
  8. CEFMETAZOLE [Suspect]
     Active Substance: CEFMETAZOLE
     Indication: GASTROINTESTINAL INFECTION
     Dosage: 1000 MG, BID
     Route: 042
     Dates: start: 20180708, end: 20180712

REACTIONS (4)
  - Colitis ischaemic [Recovering/Resolving]
  - Cardiac failure congestive [Fatal]
  - Coagulopathy [Recovered/Resolved]
  - Haematochezia [Recovered/Resolved]

NARRATIVE: CASE EVENT DATE: 20180624
